FAERS Safety Report 24000353 (Version 5)
Quarter: 2024Q3

REPORT INFORMATION
  Report Type: Report from Study
  Country: CA (occurrence: CA)
  Receive Date: 20240621
  Receipt Date: 20240917
  Transmission Date: 20241016
  Serious: Yes (Hospitalization, Other)
  Sender: JOHNSON AND JOHNSON
  Company Number: CA-JNJFOC-20230400842

PATIENT
  Age: 24 Year
  Sex: Female
  Weight: 55 kg

DRUGS (7)
  1. REMICADE [Suspect]
     Active Substance: INFLIXIMAB
     Indication: Crohn^s disease
     Dosage: EXPIRATION DATE: 31-AUG-2025
     Route: 041
     Dates: start: 20230331
  2. REMICADE [Suspect]
     Active Substance: INFLIXIMAB
     Route: 041
     Dates: start: 2023
  3. REMICADE [Suspect]
     Active Substance: INFLIXIMAB
     Dosage: EXPIRY DATE: FEB-2026
     Route: 041
     Dates: start: 20230331
  4. REMICADE [Suspect]
     Active Substance: INFLIXIMAB
     Route: 041
     Dates: start: 20230331
  5. REMICADE [Suspect]
     Active Substance: INFLIXIMAB
     Route: 041
     Dates: start: 20230331
  6. REMICADE [Suspect]
     Active Substance: INFLIXIMAB
     Route: 041
     Dates: start: 20230331
  7. REMICADE [Suspect]
     Active Substance: INFLIXIMAB
     Route: 041
     Dates: start: 20240523

REACTIONS (18)
  - Suicidal ideation [Not Recovered/Not Resolved]
  - Anal fistula [Not Recovered/Not Resolved]
  - Mental impairment [Not Recovered/Not Resolved]
  - Anal abscess [Not Recovered/Not Resolved]
  - Menstruation irregular [Not Recovered/Not Resolved]
  - Depression [Unknown]
  - Arthralgia [Recovering/Resolving]
  - Abdominal pain [Recovering/Resolving]
  - Hepatic enzyme increased [Not Recovered/Not Resolved]
  - Fistula [Recovered/Resolved]
  - Impaired healing [Not Recovered/Not Resolved]
  - Oral discomfort [Not Recovered/Not Resolved]
  - Therapeutic product effect decreased [Unknown]
  - Fungal infection [Not Recovered/Not Resolved]
  - Inappropriate schedule of product administration [Unknown]
  - Ear infection [Not Recovered/Not Resolved]
  - Lymphadenopathy [Not Recovered/Not Resolved]
  - Immune system disorder [Not Recovered/Not Resolved]

NARRATIVE: CASE EVENT DATE: 20230101
